FAERS Safety Report 5167070-7 (Version None)
Quarter: 2006Q4

REPORT INFORMATION
  Report Type: 
  Country: None (occurrence: None)
  Receive Date: 20061207
  Receipt Date: 20060726
  Transmission Date: 20070319
  Serious: Yes (Hospitalization)
  Sender: FDA-Public Use
  Company Number: 2006UW15003

PATIENT
  Age: 30511 Day
  Sex: Female
  Weight: 87.5 kg

DRUGS (10)
  1. PROPOFOL [Suspect]
     Dosage: 27-48 UG/KG/MIN
     Route: 042
     Dates: start: 20060323, end: 20060326
  2. SODIUM NITROPRUSSIDE [Concomitant]
     Route: 042
     Dates: start: 20060323, end: 20060326
  3. LOTENSIN [Concomitant]
     Route: 048
  4. NOVOLIN [Concomitant]
     Dosage: 70/30 23 UNITS AC BREAKFAST, 18 UNITS QAC DINNER
  5. BYETTA [Concomitant]
     Route: 058
  6. TOPAMAX [Concomitant]
     Route: 048
  7. PROTONIX [Concomitant]
     Route: 048
  8. ASCORBIC ACID [Concomitant]
  9. OMEGA -3 [Concomitant]
  10. TYLENOL [Concomitant]

REACTIONS (8)
  - ATELECTASIS [None]
  - ATRIAL FIBRILLATION [None]
  - ENCEPHALOPATHY [None]
  - GENERALISED OEDEMA [None]
  - HERPES ZOSTER [None]
  - INTUBATION COMPLICATION [None]
  - NASAL CAVITY MASS [None]
  - PLEURAL EFFUSION [None]
